FAERS Safety Report 11045710 (Version 4)
Quarter: 2016Q2

REPORT INFORMATION
  Report Type: Spontaneous
  Country: US (occurrence: US)
  Receive Date: 20150417
  Receipt Date: 20160622
  Transmission Date: 20160815
  Serious: Yes (Hospitalization, Other)
  Sender: FDA-Public Use
  Company Number: US-GLAXOSMITHKLINE-US2015051259

PATIENT
  Age: 69 Year
  Sex: Female

DRUGS (23)
  1. ADVAIR DISKUS [Suspect]
     Active Substance: FLUTICASONE PROPIONATE\SALMETEROL XINAFOATE
     Indication: ASTHMA
     Dosage: 1 PUFF(S), BID
     Route: 055
     Dates: start: 2005
  2. ATENOLOL. [Concomitant]
     Active Substance: ATENOLOL
  3. SIMVASTATIN. [Concomitant]
     Active Substance: SIMVASTATIN
  4. FLIXONASE 24 HOUR [Concomitant]
  5. IBUPROFEN. [Concomitant]
     Active Substance: IBUPROFEN
  6. LORATADINE. [Concomitant]
     Active Substance: LORATADINE
  7. ADVAIR DISKUS [Suspect]
     Active Substance: FLUTICASONE PROPIONATE\SALMETEROL XINAFOATE
     Indication: EMPHYSEMA
  8. LEVOTHYROXINE SODIUM HYDRATE [Concomitant]
  9. PROMETHAZINE HYDROCHLORIDE. [Concomitant]
     Active Substance: PROMETHAZINE HYDROCHLORIDE
  10. VENTOLIN HFA [Suspect]
     Active Substance: ALBUTEROL SULFATE
     Indication: ASTHMA
     Dosage: 2 PUFF(S), PRN
     Route: 055
  11. VENTOLIN HFA [Suspect]
     Active Substance: ALBUTEROL SULFATE
     Indication: EMPHYSEMA
  12. FOLIC ACID. [Concomitant]
     Active Substance: FOLIC ACID
  13. ADVAIR DISKUS [Suspect]
     Active Substance: FLUTICASONE PROPIONATE\SALMETEROL XINAFOATE
     Indication: CHRONIC OBSTRUCTIVE PULMONARY DISEASE
  14. VENTOLIN HFA [Suspect]
     Active Substance: ALBUTEROL SULFATE
     Indication: CHRONIC OBSTRUCTIVE PULMONARY DISEASE
  15. VENTOLIN HFA [Suspect]
     Active Substance: ALBUTEROL SULFATE
     Indication: DYSPNOEA
  16. MONTELUKAST SODIUM. [Concomitant]
     Active Substance: MONTELUKAST SODIUM
  17. ONDANSETRON [Concomitant]
     Active Substance: ONDANSETRON
  18. ASPIRIN. [Concomitant]
     Active Substance: ASPIRIN
  19. CLONAZEPAM. [Concomitant]
     Active Substance: CLONAZEPAM
  20. DECADRON [Concomitant]
     Active Substance: DEXAMETHASONE
  21. LISINOPRIL HYDRATE [Concomitant]
     Active Substance: LISINOPRIL
  22. SENNA-S [Concomitant]
     Active Substance: DOCUSATE SODIUM\SENNOSIDES
  23. VITAMIN D3 [Concomitant]
     Active Substance: CHOLECALCIFEROL

REACTIONS (10)
  - Neoplasm malignant [Unknown]
  - Diverticulitis [Not Recovered/Not Resolved]
  - Malaise [Unknown]
  - Colon cancer [Not Recovered/Not Resolved]
  - Flatulence [Not Recovered/Not Resolved]
  - Condition aggravated [Unknown]
  - Colostomy [Unknown]
  - Colon fistula repair [Not Recovered/Not Resolved]
  - Weight decreased [Not Recovered/Not Resolved]
  - Dyspnoea [Unknown]

NARRATIVE: CASE EVENT DATE: 2013
